FAERS Safety Report 25320760 (Version 2)
Quarter: 2025Q4

REPORT INFORMATION
  Report Type: Spontaneous
  Country: US (occurrence: US)
  Receive Date: 20250515
  Receipt Date: 20251004
  Transmission Date: 20260117
  Serious: No
  Sender: SANOFI AVENTIS
  Company Number: US-SA-2025SA138134

PATIENT
  Age: 71 Year
  Sex: Female

DRUGS (2)
  1. DUPIXENT [Suspect]
     Active Substance: DUPILUMAB
     Indication: Eczema nummular
     Dosage: 300 MG, QOW
     Route: 058
     Dates: start: 202409
  2. DUPIXENT [Suspect]
     Active Substance: DUPILUMAB
     Indication: Dermatitis atopic

REACTIONS (6)
  - Rash erythematous [Unknown]
  - Skin burning sensation [Unknown]
  - Dry skin [Unknown]
  - Pruritus [Unknown]
  - Dermatitis atopic [Unknown]
  - Rash pruritic [Unknown]

NARRATIVE: CASE EVENT DATE: 20250401
